FAERS Safety Report 26045419 (Version 1)
Quarter: 2025Q4

REPORT INFORMATION
  Report Type: Spontaneous
  Country: PK (occurrence: PK)
  Receive Date: 20251114
  Receipt Date: 20251114
  Transmission Date: 20260118
  Serious: Yes (Death, Life-Threatening, Other)
  Sender: MACLEODS
  Company Number: PK-MACLEODS PHARMA-MAC2025056315

PATIENT

DRUGS (1)
  1. LIDOCAINE [Suspect]
     Active Substance: LIDOCAINE
     Indication: Local anaesthesia
     Dosage: 20 ML 4% LIDOCAINE (800 MG OF THE DRUG)
     Route: 061

REACTIONS (7)
  - Cardiac arrest [Fatal]
  - Seizure [Unknown]
  - Respiratory distress [Unknown]
  - Local anaesthetic systemic toxicity [Unknown]
  - Hypotension [Unknown]
  - Bradycardia [Unknown]
  - Overdose [Unknown]
